FAERS Safety Report 5304550-5 (Version None)
Quarter: 2007Q2

REPORT INFORMATION
  Report Type: 
  Country: None (occurrence: None)
  Receive Date: 20070419
  Receipt Date: 20070419
  Transmission Date: 20071010
  Serious: Yes (Life-Threatening, Hospitalization)
  Sender: FDA-Public Use
  Company Number: None

PATIENT
  Age: 39 Year
  Sex: Female
  Weight: 65.7716 kg

DRUGS (1)
  1. AZITHROMYCIN [Suspect]
     Indication: SINUSITIS
     Dosage: 5 DAY COURSE 2 PILLS AND THEN PO
     Route: 048
     Dates: start: 20070410, end: 20070415

REACTIONS (6)
  - ADVERSE DRUG REACTION [None]
  - ANXIETY [None]
  - CHEST PAIN [None]
  - ELECTROCARDIOGRAM ABNORMAL [None]
  - PALPITATIONS [None]
  - STRESS [None]
